FAERS Safety Report 11197323 (Version 1)
Quarter: 2015Q2

REPORT INFORMATION
  Report Type: Spontaneous
  Country: FR (occurrence: FR)
  Receive Date: 20150617
  Receipt Date: 20150617
  Transmission Date: 20150821
  Serious: Yes (Death)
  Sender: FDA-Public Use
  Company Number: FR-BAYER-2015-327424

PATIENT
  Age: 79 Year
  Sex: Female

DRUGS (3)
  1. STIVARGA [Suspect]
     Active Substance: REGORAFENIB
     Indication: METASTASIS
     Dosage: 120 MG
  2. STIVARGA [Suspect]
     Active Substance: REGORAFENIB
     Indication: SMALL INTESTINE ADENOCARCINOMA
     Dosage: 80 MG
  3. STIVARGA [Suspect]
     Active Substance: REGORAFENIB
     Indication: SMALL INTESTINE ADENOCARCINOMA
     Dosage: 160 MG

REACTIONS (1)
  - Myalgia [Fatal]
